FAERS Safety Report 12257405 (Version 1)
Quarter: 2016Q2

REPORT INFORMATION
  Report Type: Report from Study
  Country: DE (occurrence: DE)
  Receive Date: 20160412
  Receipt Date: 20160412
  Transmission Date: 20160815
  Serious: Yes (Death, Hospitalization)
  Sender: FDA-Public Use
  Company Number: PHHO2013DE005947

PATIENT
  Age: 89 Year
  Sex: Female
  Weight: 63.5 kg

DRUGS (6)
  1. RAMIPRIL. [Concomitant]
     Active Substance: RAMIPRIL
     Indication: HYPERTENSION
     Dosage: 5 MG, QD
     Route: 065
  2. MOVICOL [Concomitant]
     Active Substance: POLYETHYLENE GLYCOL 3350\POTASSIUM CHLORIDE\SODIUM BICARBONATE\SODIUM CHLORIDE
     Indication: CONSTIPATION
     Dosage: PRN
     Route: 065
  3. NOVALGIN [Concomitant]
     Active Substance: METAMIZOLE SODIUM
     Indication: PAIN
     Dosage: UNK
     Route: 065
  4. LDE 225 [Suspect]
     Active Substance: ERISMODEGIB
     Dosage: DOSE BLIND
     Route: 048
     Dates: start: 20130423, end: 20130427
  5. LDE 225 [Suspect]
     Active Substance: ERISMODEGIB
     Dosage: DOSE BLIND
     Route: 048
     Dates: start: 20130528, end: 20131020
  6. LDE 225 [Suspect]
     Active Substance: ERISMODEGIB
     Indication: BASAL CELL CARCINOMA
     Dosage: DOSE BLIND
     Route: 048
     Dates: start: 20121127, end: 20130228

REACTIONS (7)
  - Haematuria [Recovered/Resolved]
  - Sinus tachycardia [Unknown]
  - Haematuria [Unknown]
  - Cardiac arrest [Fatal]
  - Pain [Not Recovered/Not Resolved]
  - Bladder cancer [Recovered/Resolved]
  - Urinary tract infection [Unknown]

NARRATIVE: CASE EVENT DATE: 20130427
